FAERS Safety Report 9697994 (Version 1)
Quarter: 2013Q4

REPORT INFORMATION
  Report Type: Spontaneous
  Country: GB (occurrence: None)
  Receive Date: 20131118
  Receipt Date: 20131118
  Transmission Date: 20140711
  Serious: Yes (Death)
  Sender: FDA-Public Use
  Company Number: 2008090

PATIENT
  Age: 70 Year
  Sex: Male

DRUGS (9)
  1. METHOTREXATE [Suspect]
     Indication: PSORIATIC ARTHROPATHY
     Dosage: INTRAMUSCULAR
     Route: 030
     Dates: start: 20051107
  2. ETANERCEPT [Suspect]
     Indication: PSORIATIC ARTHROPATHY
     Dosage: INTRACMUSCULAR
     Route: 030
     Dates: start: 20130808
  3. AMITRIPTYLINE [Concomitant]
  4. ASPIRIN [Concomitant]
  5. BUPRENORPHINE [Concomitant]
  6. BECLOMETASONE DIPROPIONATE [Concomitant]
  7. NAPROXEN [Concomitant]
  8. OMEPRAZOLE [Concomitant]
  9. RAMIPRIL [Concomitant]

REACTIONS (3)
  - Cough [None]
  - Pulmonary fibrosis [None]
  - Pulmonary toxicity [None]
